FAERS Safety Report 18032049 (Version 1)
Quarter: 2020Q3

REPORT INFORMATION
  Report Type: Spontaneous
  Country: US (occurrence: US)
  Receive Date: 20200716
  Receipt Date: 20200716
  Transmission Date: 20201103
  Serious: No
  Sender: FDA-Public Use
  Company Number: US-PFIZER INC-2020268412

PATIENT
  Age: 62 Year
  Sex: Female

DRUGS (1)
  1. ESTROGENS CONJUGATED [Suspect]
     Active Substance: ESTROGENS, CONJUGATED
     Dosage: 1/4 APPLICATOR FULL IN THE VAGINA 3 TIMES WEEKLY
     Route: 067

REACTIONS (2)
  - Drug ineffective [Unknown]
  - Off label use [Unknown]
